FAERS Safety Report 26058443 (Version 1)
Quarter: 2025Q4

REPORT INFORMATION
  Report Type: Spontaneous
  Country: US (occurrence: US)
  Receive Date: 20251118
  Receipt Date: 20251118
  Transmission Date: 20260118
  Serious: Yes (Other)
  Sender: RANBAXY
  Company Number: US-SUN PHARMACEUTICAL INDUSTRIES INC-2025R1-536427

PATIENT
  Sex: Male
  Weight: 3.6 kg

DRUGS (8)
  1. INSULIN NOS [Suspect]
     Active Substance: INSULIN NOS
     Indication: Diabetes mellitus
     Dosage: UNK 26 UNITS/DAY
     Route: 064
  2. OMEGA 3 [Suspect]
     Active Substance: CAPSAICIN
     Indication: Product used for unknown indication
     Dosage: UNK 3 G
     Route: 064
  3. METFORMIN [Suspect]
     Active Substance: METFORMIN HYDROCHLORIDE
     Indication: Diabetes mellitus
     Dosage: UNK 1500 MG PER DAY
     Route: 064
  4. NIACIN [Suspect]
     Active Substance: NIACIN
     Indication: Pancreatitis
     Dosage: 500 MILLIGRAM, QD
     Route: 064
  5. NIACIN [Suspect]
     Active Substance: NIACIN
     Dosage: UNK 1 G PER DAY
     Route: 064
  6. NIACIN [Suspect]
     Active Substance: NIACIN
     Dosage: UNK 2000 MG/DAY
     Route: 064
  7. LABETALOL [Suspect]
     Active Substance: LABETALOL
     Indication: Product used for unknown indication
     Dosage: UNK
     Route: 064
  8. FENOFIBRATE [Suspect]
     Active Substance: FENOFIBRATE
     Indication: Hypertriglyceridaemia
     Dosage: 2 GRAM
     Route: 064

REACTIONS (4)
  - Foetal exposure during pregnancy [Unknown]
  - Premature baby [Unknown]
  - Hypothermia neonatal [Recovering/Resolving]
  - Hypoglycaemia neonatal [Recovering/Resolving]
